FAERS Safety Report 9419373 (Version 1)
Quarter: 2013Q3

REPORT INFORMATION
  Report Type: Report from Study
  Country: US (occurrence: US)
  Receive Date: 20130725
  Receipt Date: 20130725
  Transmission Date: 20140515
  Serious: Yes (Hospitalization)
  Sender: FDA-Public Use
  Company Number: PHHY2013US078224

PATIENT
  Age: 65 Year
  Sex: Male
  Weight: 80.73 kg

DRUGS (14)
  1. HYDROCHLOROTHIAZIDE [Suspect]
     Indication: HYPERTENSION
     Dosage: 25 MG,  DAILY
     Route: 048
     Dates: start: 1995, end: 20121223
  2. LISINOPRIL [Suspect]
     Indication: HYPERTENSION
     Dosage: 20 MG, (1 IN 1 DAY)
     Route: 048
     Dates: start: 1995, end: 20121223
  3. RANITIDINE [Concomitant]
     Indication: GASTROOESOPHAGEAL REFLUX DISEASE
     Dosage: 150 MG, BID
     Route: 048
     Dates: start: 1995
  4. ZETIA [Concomitant]
     Indication: HYPERLIPIDAEMIA
     Dosage: 10 MG, QD
     Route: 048
     Dates: start: 1995
  5. AMLODIPINE [Concomitant]
     Indication: HYPERTENSION
     Dosage: 10 MG, (1 IN 1 DAY)
     Route: 048
  6. ACETYLSALICYLIC ACID [Concomitant]
     Indication: PROPHYLAXIS
     Dosage: 81 MG, (1 IN 1 DAY)
     Route: 048
     Dates: start: 2007
  7. PLAVIX [Concomitant]
     Indication: PROPHYLAXIS
     Dosage: 75 MG, (1 IN 1 DAY0
     Route: 048
     Dates: start: 2007
  8. METFORMIN [Concomitant]
     Indication: DIABETES MELLITUS
     Dosage: 1000 MG (2 IN 1 DAY)
     Route: 048
     Dates: start: 1993
  9. POTASSIUM [Concomitant]
     Indication: PROPHYLAXIS
     Dosage: 1 DF, (1 IN 1 DAY)
     Route: 048
     Dates: start: 2007
  10. ACETAMINOPHEN W/OXYCODONE [Concomitant]
     Indication: PAIN
     Dosage: 1 DF (10MG HYDROCODONE/325MG PARACETAMOL), QID
     Dates: start: 20121224
  11. NEURONTIN [Concomitant]
     Indication: PAIN
     Dosage: 300 MG, (1 IN 1 DAY)
     Route: 048
     Dates: start: 20090922
  12. HYDROCODONE BITARTRATE AND ACETAMINOPHEN [Concomitant]
     Indication: PAIN
     Dosage: 1 DF, QID
     Route: 048
     Dates: start: 20080615
  13. NOVOLIN R [Concomitant]
     Indication: DIABETES MELLITUS
     Dates: start: 20121224, end: 20121225
  14. DUONEB [Concomitant]
     Indication: CHRONIC OBSTRUCTIVE PULMONARY DISEASE
     Dates: start: 20121223, end: 20121225

REACTIONS (6)
  - Influenza [Recovered/Resolved]
  - Dehydration [Recovered/Resolved]
  - Renal failure acute [Recovered/Resolved]
  - Tachycardia [Unknown]
  - Nausea [Recovered/Resolved]
  - Vomiting [Recovered/Resolved]
